FAERS Safety Report 21211310 (Version 1)
Quarter: 2022Q3

REPORT INFORMATION
  Report Type: Spontaneous
  Country: US (occurrence: None)
  Receive Date: 20220812
  Receipt Date: 20220812
  Transmission Date: 20221027
  Serious: No
  Sender: FDA-Public Use
  Company Number: None

PATIENT
  Sex: Female

DRUGS (2)
  1. ENTECAVIR [Suspect]
     Active Substance: ENTECAVIR
     Indication: Hidradenitis
     Dosage: 0.5MG ONCE DAILY ORAL
     Route: 048
     Dates: start: 202202
  2. ENTECAVIR [Suspect]
     Active Substance: ENTECAVIR
     Indication: Hepatitis B

REACTIONS (6)
  - Condition aggravated [None]
  - Depressed mood [None]
  - Feeling abnormal [None]
  - Restlessness [None]
  - Fatigue [None]
  - Drug ineffective [None]
